FAERS Safety Report 6578609-9 (Version None)
Quarter: 2010Q1

REPORT INFORMATION
  Report Type: 
  Country: None (occurrence: None)
  Receive Date: 20100211
  Receipt Date: 20100201
  Transmission Date: 20100710
  Serious: Yes (Hospitalization)
  Sender: FDA-Public Use
  Company Number: GB-ABBOTT-10P-167-0618230-00

PATIENT
  Sex: Female
  Weight: 83 kg

DRUGS (17)
  1. HUMIRA [Suspect]
     Indication: PSORIASIS
     Route: 058
     Dates: start: 20081201, end: 20090401
  2. SOTALOL [Concomitant]
     Indication: DRUG USE FOR UNKNOWN INDICATION
     Route: 048
  3. OMEPRAZOL [Concomitant]
     Indication: DRUG USE FOR UNKNOWN INDICATION
     Route: 048
  4. FRUSEMIDE [Concomitant]
     Indication: DRUG USE FOR UNKNOWN INDICATION
  5. NICORANDIL [Concomitant]
     Indication: DRUG USE FOR UNKNOWN INDICATION
  6. SIMVASTATIN [Concomitant]
     Indication: DRUG USE FOR UNKNOWN INDICATION
  7. ASPIRIN [Concomitant]
     Indication: DRUG USE FOR UNKNOWN INDICATION
  8. ORAMORPH SR [Concomitant]
     Indication: DRUG USE FOR UNKNOWN INDICATION
  9. PERINDOPRIL [Concomitant]
     Indication: DRUG USE FOR UNKNOWN INDICATION
  10. PARACETAMOL [Concomitant]
     Indication: DRUG USE FOR UNKNOWN INDICATION
  11. LANTUS [Concomitant]
     Indication: DRUG USE FOR UNKNOWN INDICATION
  12. APIDRA [Concomitant]
     Indication: DRUG USE FOR UNKNOWN INDICATION
  13. CALCEOS [Concomitant]
     Indication: DRUG USE FOR UNKNOWN INDICATION
  14. SENNA [Concomitant]
     Indication: DRUG USE FOR UNKNOWN INDICATION
  15. ZOPICLONE [Concomitant]
     Indication: DRUG USE FOR UNKNOWN INDICATION
  16. MST [Concomitant]
     Indication: DRUG USE FOR UNKNOWN INDICATION
  17. METOLLOPRAMIDE [Concomitant]
     Indication: DRUG USE FOR UNKNOWN INDICATION

REACTIONS (5)
  - DYSPHAGIA [None]
  - OESOPHAGEAL CANDIDIASIS [None]
  - ORAL CANDIDIASIS [None]
  - OROPHARYNGEAL CANDIDIASIS [None]
  - PHARYNGEAL OEDEMA [None]
